FAERS Safety Report 9915665 (Version 1)
Quarter: 2014Q1

REPORT INFORMATION
  Report Type: Spontaneous
  Country: US (occurrence: None)
  Receive Date: 20140219
  Receipt Date: 20140219
  Transmission Date: 20141002
  Serious: Yes (Hospitalization)
  Sender: FDA-Public Use
  Company Number: None

PATIENT
  Age: 78 Year
  Sex: Male

DRUGS (14)
  1. CERTOLIZUMAB [Suspect]
     Indication: RHEUMATOID ARTHRITIS
     Route: 058
  2. ASCORBIC ACID [Concomitant]
  3. ASPIRIN [Concomitant]
  4. CHOLECALCIFEROL [Concomitant]
  5. CLOPIDOGREL [Concomitant]
  6. CEFAZOLIN [Concomitant]
  7. ENOXAPARIN [Concomitant]
  8. FEBUXOSTAT [Concomitant]
  9. FINASTERIDE [Concomitant]
  10. FOLIC ACID [Concomitant]
  11. METOPROLOL SUCCINATE [Concomitant]
  12. PROTONIX [Concomitant]
  13. SIMVASTATIN [Concomitant]
  14. TAMSULOSIN [Concomitant]

REACTIONS (3)
  - Oedema peripheral [None]
  - Asthenia [None]
  - Cardiac failure [None]
